FAERS Safety Report 4641064-X (Version None)
Quarter: 2005Q2

REPORT INFORMATION
  Report Type: 
  Country: None (occurrence: None)
  Receive Date: 20050419
  Receipt Date: 20050419
  Transmission Date: 20051028
  Serious: Yes (Hospitalization)
  Sender: FDA-Public Use
  Company Number: None

PATIENT
  Age: 62 Year
  Sex: Male
  Weight: 69.6 kg

DRUGS (14)
  1. PHENYTOIN [Suspect]
     Indication: CONVULSION
     Dosage: 520MG, 260MG BI, ORAL
     Route: 048
  2. OMEPRAZOLE [Concomitant]
  3. MULTIVITAMIN/MINERALS THERAPEUT TAB [Concomitant]
  4. METRONIDAZOLE [Concomitant]
  5. CALCIUM CARBONATE [Concomitant]
  6. BACLOFEN [Concomitant]
  7. ASCORBIC ACID [Concomitant]
  8. ZINC SULFATE [Concomitant]
  9. FLUCONAZOLE [Concomitant]
  10. GABAPENTIN [Concomitant]
  11. MIRTAZAPINE [Concomitant]
  12. OXYCODONE AND ACETAMINOPHEN [Concomitant]
  13. CEFEPIME [Concomitant]
  14. VANCOMYCIN [Concomitant]

REACTIONS (1)
  - DRUG TOXICITY [None]
